FAERS Safety Report 10082040 (Version 1)
Quarter: 2014Q2

REPORT INFORMATION
  Report Type: Spontaneous
  Country: DE (occurrence: DE)
  Receive Date: 20140416
  Receipt Date: 20140416
  Transmission Date: 20141212
  Serious: Yes (Congenital Anomaly, Other)
  Sender: FDA-Public Use
  Company Number: DE-TEVA-473984GER

PATIENT
  Age: 0 Year
  Sex: Female

DRUGS (1)
  1. ISOTRETINOIN [Suspect]
     Dosage: THE SUSPECT MEDICATION WAS TAKEN BY THE FATHER
     Route: 065

REACTIONS (3)
  - Developmental delay [Not Recovered/Not Resolved]
  - Mental impairment [Not Recovered/Not Resolved]
  - Brachydactyly [Not Recovered/Not Resolved]
